FAERS Safety Report 24770921 (Version 1)
Quarter: 2024Q4

REPORT INFORMATION
  Report Type: Other
  Country: AU (occurrence: AU)
  Receive Date: 20241224
  Receipt Date: 20241224
  Transmission Date: 20250115
  Serious: Yes (Other)
  Sender: KARYOPHARM THERAPEUTICS
  Company Number: AU-ANTENGENE-20241202920

PATIENT

DRUGS (6)
  1. XPOVIO [Suspect]
     Active Substance: SELINEXOR
     Indication: Malignant neoplasm of unknown primary site
     Dosage: UNK
  2. KYPROLIS [Suspect]
     Active Substance: CARFILZOMIB
     Indication: Malignant neoplasm of unknown primary site
     Dosage: UNK
  3. BORTEZOMIB [Suspect]
     Active Substance: BORTEZOMIB
     Indication: Malignant neoplasm of unknown primary site
     Dosage: UNK
  4. CYCLOPHOSPHAMIDE [Suspect]
     Active Substance: CYCLOPHOSPHAMIDE
     Indication: Malignant neoplasm of unknown primary site
     Dosage: UNK
  5. DARATUMUMAB [Suspect]
     Active Substance: DARATUMUMAB
     Indication: Malignant neoplasm of unknown primary site
     Dosage: UNK
  6. DEXAMETHASONE [Suspect]
     Active Substance: DEXAMETHASONE
     Indication: Malignant neoplasm of unknown primary site
     Dosage: UNK

REACTIONS (3)
  - Plasma cell myeloma [Unknown]
  - Transitional cell carcinoma [Unknown]
  - Off label use [Unknown]
